FAERS Safety Report 5621926-7 (Version None)
Quarter: 2008Q1

REPORT INFORMATION
  Report Type: 
  Country: None (occurrence: None)
  Receive Date: 20080206
  Receipt Date: 20080123
  Transmission Date: 20080703
  Serious: Yes (Hospitalization)
  Sender: FDA-Public Use
  Company Number: 6040471

PATIENT
  Age: 72 Year
  Sex: Female

DRUGS (8)
  1. DETENSIEL (10 MG, TABLET) (BISOPROLOL FUMARATE) [Suspect]
     Indication: DRUG USE FOR UNKNOWN INDICATION
     Dates: start: 20030101
  2. NISISCO (TABLET) (HYDROCHLOROTHIAZIDE, VALSARTAN) [Suspect]
     Dates: start: 20030101
  3. SERC (TABLET) (BETAHISTINE HYDROCHLORIDE) [Suspect]
     Indication: DRUG USE FOR UNKNOWN INDICATION
     Dosage: ORAL
     Route: 048
     Dates: start: 20010101
  4. ENDOTELON (TABLET) (VITIS VINIFERA, HERBAL EXTRACT NOS) [Suspect]
     Indication: DRUG USE FOR UNKNOWN INDICATION
     Dosage: ORAL
     Route: 048
     Dates: start: 20000101
  5. FOSAVANCE (TABLET) (COLECALCIFEROL, ALENDRONATE SODIUM) [Suspect]
     Indication: DRUG USE FOR UNKNOWN INDICATION
     Dosage: ORAL
     Route: 048
     Dates: start: 20060101
  6. FEMARA [Suspect]
     Indication: DRUG USE FOR UNKNOWN INDICATION
     Dosage: ORAL
     Route: 048
     Dates: start: 20060101
  7. CHONDROSULF (CAPSULES) (CHONDROITIN SULFATE SODIUM) [Suspect]
     Indication: DRUG USE FOR UNKNOWN INDICATION
     Dosage: ORAL
     Route: 048
     Dates: start: 20060101
  8. EBASTINE [Suspect]
     Indication: DERMATITIS
     Dosage: ORAL
     Route: 048

REACTIONS (5)
  - CHEILITIS [None]
  - DRUG RASH WITH EOSINOPHILIA AND SYSTEMIC SYMPTOMS [None]
  - MUCOSAL EROSION [None]
  - RENAL FAILURE [None]
  - TRANSAMINASES INCREASED [None]
